FAERS Safety Report 10301568 (Version 1)
Quarter: 2014Q3

REPORT INFORMATION
  Report Type: Spontaneous
  Country: IT (occurrence: IT)
  Receive Date: 20140714
  Receipt Date: 20140714
  Transmission Date: 20150326
  Serious: Yes (Disabling)
  Sender: FDA-Public Use
  Company Number: IT-TEVA-493776ISR

PATIENT
  Age: 7 Month
  Sex: Female

DRUGS (7)
  1. AMIKACIN [Concomitant]
     Active Substance: AMIKACIN
     Indication: ESCHERICHIA SEPSIS
     Route: 065
  2. ASPIRIN. [Concomitant]
     Active Substance: ASPIRIN
     Route: 065
  3. FUROSEMIDE. [Concomitant]
     Active Substance: FUROSEMIDE
     Route: 065
  4. VANCOMYCIN [Concomitant]
     Active Substance: VANCOMYCIN
     Indication: ESCHERICHIA SEPSIS
     Route: 065
  5. RANITIDINE [Concomitant]
     Active Substance: RANITIDINE\RANITIDINE HYDROCHLORIDE
     Route: 065
  6. SILDENAFIL [Suspect]
     Active Substance: SILDENAFIL
     Indication: CHYLOTHORAX
     Dosage: .6 MG/KG DAILY;
     Route: 048
  7. HYDROCHLOROTHIAZIDE, SPIRONOLACTONE [Concomitant]
     Route: 065

REACTIONS (2)
  - Blindness [Not Recovered/Not Resolved]
  - Optic ischaemic neuropathy [Recovering/Resolving]
